FAERS Safety Report 5712637-8 (Version None)
Quarter: 2008Q2

REPORT INFORMATION
  Report Type: 
  Country: None (occurrence: None)
  Receive Date: 20080422
  Receipt Date: 20080410
  Transmission Date: 20081010
  Serious: Yes (Death, Hospitalization, Other)
  Sender: FDA-Public Use
  Company Number: US-AVENTIS-200810293US

PATIENT
  Sex: Male

DRUGS (2)
  1. KETEK [Suspect]
     Dosage: DOSE: UNK
     Route: 048
     Dates: start: 20060523, end: 20060501
  2. FLAGYL [Concomitant]
     Dosage: DOSE: UNK
     Dates: start: 20060426

REACTIONS (20)
  - ABDOMINAL PAIN [None]
  - ACUTE RESPIRATORY FAILURE [None]
  - ASCITES [None]
  - ASTHENIA [None]
  - FATIGUE [None]
  - HEPATIC ENCEPHALOPATHY [None]
  - HEPATIC ENZYME INCREASED [None]
  - HEPATIC FAILURE [None]
  - HEPATORENAL SYNDROME [None]
  - HYPOCHLORAEMIA [None]
  - HYPONATRAEMIA [None]
  - JAUNDICE [None]
  - MALNUTRITION [None]
  - NAUSEA [None]
  - PNEUMONIA ASPIRATION [None]
  - PYREXIA [None]
  - RENAL FAILURE [None]
  - UPPER GASTROINTESTINAL HAEMORRHAGE [None]
  - VOMITING [None]
  - WAIST CIRCUMFERENCE INCREASED [None]
